FAERS Safety Report 5940038-6 (Version None)
Quarter: 2008Q4

REPORT INFORMATION
  Report Type: 
  Country: None (occurrence: None)
  Receive Date: 20081104
  Receipt Date: 20081027
  Transmission Date: 20090506
  Serious: Yes (Other)
  Sender: FDA-Public Use
  Company Number: PHEH2008US09705

PATIENT
  Sex: Female

DRUGS (1)
  1. MIACALCIN [Suspect]
     Indication: OSTEOPENIA
     Dosage: UNK
     Dates: start: 20070101

REACTIONS (2)
  - STRESS CARDIOMYOPATHY [None]
  - VIRAL PERICARDITIS [None]
